FAERS Safety Report 9125666 (Version 1)
Quarter: 2013Q1

REPORT INFORMATION
  Report Type: Spontaneous
  Country: IT (occurrence: IT)
  Receive Date: 20130117
  Receipt Date: 20130117
  Transmission Date: 20140127
  Serious: Yes (Life-Threatening)
  Sender: FDA-Public Use
  Company Number: IT-PFIZER INC-2013018075

PATIENT
  Age: 59 Year
  Sex: Male

DRUGS (4)
  1. CARBOPLATIN [Suspect]
     Indication: MESOTHELIOMA
     Dosage: 500 MG, CYCLIC
     Route: 042
     Dates: start: 20121206, end: 20130103
  2. DEXAMETHASONE [Concomitant]
  3. ONDANSETRON [Concomitant]
  4. RANITIDINE [Concomitant]

REACTIONS (3)
  - Back pain [Recovered/Resolved]
  - Malaise [Recovered/Resolved]
  - Flushing [Recovered/Resolved]
